FAERS Safety Report 9636823 (Version 4)
Quarter: 2014Q1

REPORT INFORMATION
  Report Type: Spontaneous
  Country: US (occurrence: US)
  Receive Date: 20131022
  Receipt Date: 20140124
  Transmission Date: 20141002
  Serious: Yes (Hospitalization)
  Sender: FDA-Public Use
  Company Number: US-BIOGENIDEC-2013BI100267

PATIENT
  Age: 45 Year
  Sex: Female
  Weight: 63 kg

DRUGS (10)
  1. TYSABRI [Suspect]
     Indication: MULTIPLE SCLEROSIS
     Route: 042
     Dates: start: 201210
  2. AVONEX [Concomitant]
     Route: 030
  3. PRISTIQ [Concomitant]
     Route: 048
  4. VALIUM [Concomitant]
  5. MIRALAX [Concomitant]
  6. IBUPROFEN [Concomitant]
  7. KLONOPIN [Concomitant]
  8. IRON TAB [Concomitant]
  9. VITAMIN B COMPLEX [Concomitant]
  10. VITAMIN D [Concomitant]

REACTIONS (6)
  - Back pain [Not Recovered/Not Resolved]
  - Fatigue [Not Recovered/Not Resolved]
  - Depressed mood [Not Recovered/Not Resolved]
  - Spinal compression fracture [Recovered/Resolved]
  - Fall [Recovered/Resolved]
  - Gastric disorder [Recovered/Resolved]
